FAERS Safety Report 8535507-9 (Version None)
Quarter: 2012Q3

REPORT INFORMATION
  Report Type: 
  Country: None (occurrence: None)
  Receive Date: 20120718
  Receipt Date: 20120718
  Transmission Date: 20120928
  Serious: Yes (Other)
  Sender: FDA-Public Use
  Company Number: None

PATIENT
  Age: 47 Year
  Sex: Female
  Weight: 62.1428 kg

DRUGS (1)
  1. BISACODYL [Suspect]
     Indication: CONSTIPATION
     Dosage: 1 EVENING PO
     Route: 048
     Dates: start: 20120715, end: 20120716

REACTIONS (2)
  - MUSCLE SPASMS [None]
  - MIDDLE INSOMNIA [None]
